FAERS Safety Report 7146726-0 (Version None)
Quarter: 2010Q4

REPORT INFORMATION
  Report Type: 
  Country: None (occurrence: None)
  Receive Date: 20101208
  Receipt Date: 20101129
  Transmission Date: 20110411
  Serious: Yes (Death, Hospitalization)
  Sender: FDA-Public Use
  Company Number: FR-MERCK-1011FRA00116

PATIENT
  Age: 39 Year
  Sex: Male
  Weight: 64 kg

DRUGS (4)
  1. ISENTRESS [Suspect]
     Indication: HIV INFECTION
     Route: 048
     Dates: start: 20100623, end: 20100101
  2. ISENTRESS [Suspect]
     Route: 048
     Dates: start: 20101020, end: 20101114
  3. TENOFOVIR DISOPROXIL FUMARATE [Concomitant]
     Route: 048
  4. LOPINAVIR AND RITONAVIR [Concomitant]
     Route: 048

REACTIONS (4)
  - ADVERSE EVENT [None]
  - HEPATIC FAILURE [None]
  - LYMPHADENOPATHY [None]
  - SEPTIC SHOCK [None]
